FAERS Safety Report 7209073-4 (Version None)
Quarter: 2010Q4

REPORT INFORMATION
  Report Type: 
  Country: None (occurrence: None)
  Receive Date: 20101222
  Receipt Date: 20101213
  Transmission Date: 20110411
  Serious: Yes (Hospitalization)
  Sender: FDA-Public Use
  Company Number: 2010MA005249

PATIENT
  Age: 58 Year
  Sex: Male

DRUGS (7)
  1. CITALOPRAM HYDROBROMIDE [Suspect]
     Indication: DEPRESSION
     Dosage: 20 MG; QD; PO
     Route: 048
  2. ACETYLSALICYLIC ACID SRT [Suspect]
     Indication: CEREBROVASCULAR ACCIDENT
     Dosage: 75 MG; QD; PO
  3. LANSOPRAZOLE [Concomitant]
  4. SODIUM FEREDETATE [Concomitant]
  5. SIMVASTATIN TABLETS USP, 20MG (ATLLC) [Concomitant]
  6. PARACETAMOL [Concomitant]
  7. CHLORHEXIDINE GLUCONATE [Concomitant]

REACTIONS (3)
  - HAEMOGLOBIN DECREASED [None]
  - HAEMORRHOIDS [None]
  - RECTAL HAEMORRHAGE [None]
